FAERS Safety Report 21438013 (Version 1)
Quarter: 2022Q4

REPORT INFORMATION
  Report Type: Spontaneous
  Country: CN (occurrence: CN)
  Receive Date: 20221011
  Receipt Date: 20221011
  Transmission Date: 20230113
  Serious: Yes (Death, Other)
  Sender: FDA-Public Use
  Company Number: CN-AMGEN-CHNSP2022172909

PATIENT

DRUGS (1)
  1. XGEVA [Suspect]
     Active Substance: DENOSUMAB
     Indication: Metastases to spine
     Dosage: UNK
     Route: 065

REACTIONS (8)
  - Death [Fatal]
  - Cerebrospinal fluid leakage [Unknown]
  - Spinal cord injury [Unknown]
  - Metastases to spine [Unknown]
  - Device breakage [Unknown]
  - Breast cancer recurrent [Unknown]
  - Procedural pain [Unknown]
  - Infection [Unknown]
